FAERS Safety Report 5982895-3 (Version None)
Quarter: 2008Q4

REPORT INFORMATION
  Report Type: 
  Country: None (occurrence: None)
  Receive Date: 20081208
  Receipt Date: 20081203
  Transmission Date: 20090506
  Serious: Yes (Death, Hospitalization, Other)
  Sender: FDA-Public Use
  Company Number: FR-BRISTOL-MYERS SQUIBB COMPANY-14430136

PATIENT
  Age: 89 Year
  Sex: Female

DRUGS (4)
  1. ELISOR [Suspect]
     Indication: HYPERCHOLESTEROLAEMIA
     Dates: start: 20080716, end: 20081007
  2. NORSET [Suspect]
     Indication: DEPRESSION
     Dates: start: 20080916, end: 20081007
  3. KARDEGIC [Concomitant]
  4. CO-TAREG [Concomitant]

REACTIONS (4)
  - HAEMORRHAGIC DISORDER [None]
  - HEPATITIS FULMINANT [None]
  - HYPERCREATININAEMIA [None]
  - RHABDOMYOLYSIS [None]
